FAERS Safety Report 15385601 (Version 1)
Quarter: 2018Q3

REPORT INFORMATION
  Report Type: Spontaneous
  Country: US (occurrence: US)
  Receive Date: 20180907
  Receipt Date: 20180907
  Transmission Date: 20181010
  Serious: No
  Sender: FDA-Public Use
  Company Number: None

PATIENT
  Age: 39 Year
  Sex: Male

DRUGS (1)
  1. TACROLIMUS CAP 5MG [Suspect]
     Active Substance: TACROLIMUS
     Dates: start: 20180905

REACTIONS (4)
  - Hypoaesthesia [None]
  - Dizziness [None]
  - Hyperhidrosis [None]
  - Paraesthesia [None]

NARRATIVE: CASE EVENT DATE: 20180905
